FAERS Safety Report 10146066 (Version 1)
Quarter: 2014Q2

REPORT INFORMATION
  Report Type: Spontaneous
  Country: US (occurrence: None)
  Receive Date: 20140430
  Receipt Date: 20140430
  Transmission Date: 20141212
  Serious: Yes (Other)
  Sender: FDA-Public Use
  Company Number: None

PATIENT
  Sex: Female
  Weight: 158.2 kg

DRUGS (1)
  1. XELJANZ [Suspect]
     Indication: RHEUMATOID ARTHRITIS
     Route: 048
     Dates: start: 20140227

REACTIONS (6)
  - Upper respiratory tract infection [None]
  - Nausea [None]
  - Headache [None]
  - Fatigue [None]
  - Cough [None]
  - Change of bowel habit [None]
